FAERS Safety Report 18997185 (Version 1)
Quarter: 2021Q1

REPORT INFORMATION
  Report Type: Report from Study
  Country: None (occurrence: US)
  Receive Date: 20210311
  Receipt Date: 20210311
  Transmission Date: 20210420
  Serious: Yes (Hospitalization, Other)
  Sender: FDA-Public Use
  Company Number: US-ABBVIE-21K-163-3804567-00

PATIENT
  Sex: Female

DRUGS (3)
  1. VENCLEXTA [Suspect]
     Active Substance: VENETOCLAX
     Route: 048
     Dates: start: 20200728
  2. METOPROLOL. [Suspect]
     Active Substance: METOPROLOL
     Indication: PRODUCT USED FOR UNKNOWN INDICATION
     Route: 065
  3. VENCLEXTA [Suspect]
     Active Substance: VENETOCLAX
     Indication: B-CELL PROLYMPHOCYTIC LEUKAEMIA
     Route: 048

REACTIONS (15)
  - Cerebrovascular accident [Unknown]
  - Cardiac disorder [Unknown]
  - Nausea [Unknown]
  - Heart rate abnormal [Unknown]
  - Ventricular extrasystoles [Unknown]
  - Heart rate decreased [Unknown]
  - Dyspnoea [Unknown]
  - Mobility decreased [Not Recovered/Not Resolved]
  - Renal impairment [Unknown]
  - Vomiting [Unknown]
  - Echocardiogram abnormal [Unknown]
  - Chest pain [Unknown]
  - Urinary tract infection [Unknown]
  - Feeling abnormal [Unknown]
  - Dementia [Unknown]
